FAERS Safety Report 18049614 (Version 1)
Quarter: 2020Q3

REPORT INFORMATION
  Report Type: Spontaneous
  Country: JP (occurrence: JP)
  Receive Date: 20200721
  Receipt Date: 20200721
  Transmission Date: 20201103
  Serious: Yes (Hospitalization, Other)
  Sender: FDA-Public Use
  Company Number: JP-BRISTOL-MYERS SQUIBB COMPANY-BMS-2020-057415

PATIENT
  Age: 66 Year
  Sex: Male
  Weight: 59.5 kg

DRUGS (1)
  1. NIVOLUMAB [Suspect]
     Active Substance: NIVOLUMAB
     Indication: GASTRIC CANCER STAGE IV
     Dosage: 240 MILLIGRAM/KILOGRAM, Q2WK
     Route: 065

REACTIONS (2)
  - IgA nephropathy [Recovering/Resolving]
  - Tubulointerstitial nephritis [Recovering/Resolving]
